FAERS Safety Report 12388381 (Version 1)
Quarter: 2016Q2

REPORT INFORMATION
  Report Type: Report from Study
  Country: MX (occurrence: MX)
  Receive Date: 20160520
  Receipt Date: 20160520
  Transmission Date: 20160815
  Serious: Yes (Other)
  Sender: FDA-Public Use
  Company Number: PHHY2016MX029015

PATIENT
  Age: 71 Year
  Sex: Male

DRUGS (3)
  1. EXELON PATCH [Suspect]
     Active Substance: RIVASTIGMINE
     Indication: SENILE DEMENTIA
     Dosage: EXELON PATCH 10 (CM2)
     Route: 062
     Dates: start: 201602
  2. MEMANTINE. [Concomitant]
     Active Substance: MEMANTINE
     Indication: PRODUCT USED FOR UNKNOWN INDICATION
     Dosage: UNK
     Route: 065
  3. EXELON PATCH [Suspect]
     Active Substance: RIVASTIGMINE
     Indication: DEMENTIA ALZHEIMER^S TYPE

REACTIONS (5)
  - Urinary incontinence [Unknown]
  - Abnormal behaviour [Recovered/Resolved]
  - Head deformity [Unknown]
  - Brain oedema [Unknown]
  - Weight decreased [Unknown]

NARRATIVE: CASE EVENT DATE: 20160507
